FAERS Safety Report 9433018 (Version 1)
Quarter: 2013Q3

REPORT INFORMATION
  Report Type: Spontaneous
  Country: JP (occurrence: None)
  Receive Date: 20130729
  Receipt Date: 20130729
  Transmission Date: 20140515
  Serious: Yes (Other)
  Sender: FDA-Public Use
  Company Number: 2013P1012857

PATIENT
  Sex: Female

DRUGS (1)
  1. LOSARTAN \ HYDROCHLOROTHIAZIDE. [Suspect]
     Indication: HYPERTENSION

REACTIONS (3)
  - Dysarthria [None]
  - Monoplegia [None]
  - Cerebral haemorrhage [None]
